FAERS Safety Report 7226744-4 (Version None)
Quarter: 2011Q1

REPORT INFORMATION
  Report Type: 
  Country: None (occurrence: None)
  Receive Date: 20110114
  Receipt Date: 20110105
  Transmission Date: 20110831
  Serious: Yes (Other)
  Sender: FDA-Public Use
  Company Number: DE-JNJFOC-20110100628

PATIENT
  Sex: Male
  Weight: 78 kg

DRUGS (2)
  1. STELARA [Suspect]
     Indication: PSORIASIS
     Route: 058
  2. VOTUM [Concomitant]
     Indication: HYPERTENSION

REACTIONS (1)
  - SQUAMOUS CELL CARCINOMA OF SKIN [None]
